FAERS Safety Report 15552123 (Version 3)
Quarter: 2020Q3

REPORT INFORMATION
  Report Type: Spontaneous
  Country: FR (occurrence: FR)
  Receive Date: 20181025
  Receipt Date: 20200702
  Transmission Date: 20201102
  Serious: Yes (Hospitalization, Other)
  Sender: FDA-Public Use
  Company Number: PHHY2018FR134389

PATIENT
  Age: 78 Year
  Sex: Male
  Weight: 70 kg

DRUGS (19)
  1. RHINOFLUIMUCIL [Suspect]
     Active Substance: ACETYLCYSTEINE\BENZALKONIUM CHLORIDE\TUAMINOHEPTANE SULFATE
     Dosage: UNK
     Route: 045
     Dates: start: 20160929, end: 20161003
  2. AMIODARONE [Concomitant]
     Active Substance: AMIODARONE
     Dosage: 1/2 TABLET/DAY,
     Route: 065
  3. RHINOFLUIMUCIL [Suspect]
     Active Substance: ACETYLCYSTEINE\BENZALKONIUM CHLORIDE\TUAMINOHEPTANE SULFATE
     Indication: TONSILLITIS
     Dosage: UNK
     Route: 065
     Dates: start: 20160927, end: 20161003
  4. SURBRONC [Suspect]
     Active Substance: AMBROXOL HYDROCHLORIDE
     Indication: TONSILLITIS
     Dosage: UNK
     Route: 048
     Dates: start: 20160927, end: 20161003
  5. SYMBICORT [Concomitant]
     Active Substance: BUDESONIDE\FORMOTEROL FUMARATE DIHYDRATE
     Dosage: 1 PUFF(S), BID
     Route: 065
  6. SIMVASTATIN. [Concomitant]
     Active Substance: SIMVASTATIN
     Indication: PRODUCT USED FOR UNKNOWN INDICATION
     Dosage: 20 MG, QD
     Route: 065
  7. PREVISCAN (FLUINDIONE) [Concomitant]
     Active Substance: FLUINDIONE
     Indication: PRODUCT USED FOR UNKNOWN INDICATION
     Dosage: UNK
     Route: 065
  8. TAMSULOSIN [Suspect]
     Active Substance: TAMSULOSIN
     Indication: TONSILLITIS
     Dosage: INCONNUE
     Route: 048
     Dates: start: 20160929, end: 20161003
  9. INSPRA [Concomitant]
     Active Substance: EPLERENONE
     Indication: PRODUCT USED FOR UNKNOWN INDICATION
     Dosage: 25 MG, QD
     Route: 065
  10. SYMBICORT [Concomitant]
     Active Substance: BUDESONIDE\FORMOTEROL FUMARATE DIHYDRATE
     Indication: PRODUCT USED FOR UNKNOWN INDICATION
     Dosage: UNK, QD
     Route: 065
  11. PERINDOPRIL [Concomitant]
     Active Substance: PERINDOPRIL
     Indication: PRODUCT USED FOR UNKNOWN INDICATION
     Dosage: 1 DF (?G/L), QD
     Route: 065
  12. AMOXICILLIN. [Suspect]
     Active Substance: AMOXICILLIN
     Indication: TONSILLITIS
     Dosage: UNK
     Route: 048
     Dates: start: 20160927, end: 20161002
  13. AMIODARONE [Concomitant]
     Active Substance: AMIODARONE
     Indication: PRODUCT USED FOR UNKNOWN INDICATION
     Dosage: 0.5 ?G/L, QD
     Route: 065
  14. TAMSULOSIN [Suspect]
     Active Substance: TAMSULOSIN
     Dosage: UNK
     Route: 048
     Dates: start: 20160927, end: 20161003
  15. PERINDOPRIL [Concomitant]
     Active Substance: PERINDOPRIL
     Route: 065
  16. PREVISCAN [Concomitant]
     Indication: PRODUCT USED FOR UNKNOWN INDICATION
     Dosage: (0?0?1/2) AND (0?0?3/4) IN ALTERNATION
     Route: 065
  17. MAXILASE [Suspect]
     Active Substance: PANCRELIPASE
     Indication: TONSILLITIS
     Dosage: UNK
     Route: 048
     Dates: start: 20160927, end: 20161003
  18. IXPRIM [Concomitant]
     Active Substance: ACETAMINOPHEN\TRAMADOL HYDROCHLORIDE
     Indication: PRODUCT USED FOR UNKNOWN INDICATION
     Dosage: UNK
     Route: 065
  19. IXPRIM [Concomitant]
     Active Substance: ACETAMINOPHEN\TRAMADOL HYDROCHLORIDE
     Dosage: 37.5/325 IF REQUIRED
     Route: 065

REACTIONS (10)
  - Hypotension [Unknown]
  - Odynophagia [Unknown]
  - Pruritus [Recovered/Resolved]
  - Headache [Unknown]
  - Chest discomfort [Unknown]
  - Product use in unapproved indication [Unknown]
  - Paraesthesia [Unknown]
  - Rash maculo-papular [Recovered/Resolved]
  - Blood pressure systolic increased [Unknown]
  - Prostatitis [Unknown]

NARRATIVE: CASE EVENT DATE: 20160929
